FAERS Safety Report 8439197 (Version 2)
Quarter: 2013Q2

REPORT INFORMATION
  Report Type: Spontaneous
  Country: US (occurrence: None)
  Receive Date: 20120104
  Receipt Date: 20120508
  Transmission Date: 20140414
  Serious: Yes (Other)
  Sender: FDA-Public Use
  Company Number: 2011HGS-002933

PATIENT
  Age: 35 Year
  Sex: Female
  Weight: 52.16 kg

DRUGS (14)
  1. BENLYSTA [Suspect]
     Dosage: 1 IN 14 D, INTRAVENOUS DRIP
     Route: 041
     Dates: start: 20111026
  2. PLAQUENIL (HYDROXYCHLOROQUINE SULFATE)(HYDROXYCHLOROQUINE SULFATE) [Concomitant]
  3. IMURAN [Concomitant]
  4. ZOLOFT [Concomitant]
  5. TRAMADOL HYDROCHLORIDE [Concomitant]
  6. IBUPROFEN [Concomitant]
  7. XANAX [Concomitant]
  8. ZYRTEC [Concomitant]
  9. VICOPROFEN [Concomitant]
  10. SOMA [Concomitant]
  11. FLEXERIL [Concomitant]
  12. TIZANIDINE [Concomitant]
  13. COLACE [Concomitant]
  14. TRIPLE PROBIIOTIC [Concomitant]

REACTIONS (9)
  - PRURITUS [None]
  - ERYTHEMA [None]
  - FEELING HOT [None]
  - THROAT IRRITATION [None]
  - NAUSEA [None]
  - Depression [None]
  - Suicidal ideation [None]
  - Hypersensitivity [None]
  - Blood pressure increased [None]
